FAERS Safety Report 12600638 (Version 9)
Quarter: 2018Q1

REPORT INFORMATION
  Report Type: Report from Study
  Country: DE (occurrence: DE)
  Receive Date: 20160727
  Receipt Date: 20180312
  Transmission Date: 20180508
  Serious: Yes (Death, Other)
  Sender: FDA-Public Use
  Company Number: DE-GILEAD-2016-0207668

PATIENT
  Age: 75 Year
  Sex: Female
  Weight: 74 kg

DRUGS (21)
  1. COTRIMOXAZOLE [Concomitant]
     Active Substance: SULFAMETHOXAZOLE\TRIMETHOPRIM
     Dosage: UNK
  2. COTRIMOXAZOLE [Concomitant]
     Active Substance: SULFAMETHOXAZOLE\TRIMETHOPRIM
     Indication: PROPHYLAXIS
     Dosage: UNK
  3. CERTOPARIN SODIUM [Concomitant]
     Active Substance: CERTOPARIN SODIUM
     Dosage: 3000 DF, UNK
     Route: 058
     Dates: start: 20151228, end: 20160110
  4. COTRIM E RATIOPHARM [Concomitant]
     Dosage: UNK
  5. ALLOPURINOL. [Concomitant]
     Active Substance: ALLOPURINOL
     Dosage: UNK
  6. ZYDELIG [Suspect]
     Active Substance: IDELALISIB
     Indication: CHRONIC LYMPHOCYTIC LEUKAEMIA
     Dosage: 150 MG, BID
     Route: 048
     Dates: start: 20151116, end: 20160321
  7. ALLOPURINOL-RATIOPHARM [Concomitant]
     Active Substance: ALLOPURINOL
     Indication: PROPHYLAXIS
     Dosage: UNK
     Dates: start: 20160321
  8. E-RATIOPHARM [Concomitant]
     Dosage: UNK
     Dates: start: 20160321
  9. SF [Concomitant]
     Active Substance: SODIUM FLUORIDE
  10. ALLOPURINOL. [Concomitant]
     Active Substance: ALLOPURINOL
     Dosage: UNK
  11. ALLOPURINOL-RATIOPHARM [Concomitant]
     Active Substance: ALLOPURINOL
     Dosage: UNK
  12. ZYDELIG [Suspect]
     Active Substance: IDELALISIB
     Indication: B-CELL LYMPHOMA
     Dosage: 150 MG, UNK
     Route: 048
     Dates: start: 20151116, end: 20160411
  13. CERTOPARIN SODIUM [Concomitant]
     Active Substance: CERTOPARIN SODIUM
     Dosage: 3000 DF, UNK
     Route: 058
     Dates: start: 20151228, end: 20160110
  14. ZYDELIG [Suspect]
     Active Substance: IDELALISIB
     Dosage: DAILY DOSE: 300 MG MILLIGRAM(S) EVERY DAY
     Route: 048
     Dates: start: 20151116, end: 20160321
  15. RITUXIMAB. [Suspect]
     Active Substance: RITUXIMAB
     Indication: CHRONIC LYMPHOCYTIC LEUKAEMIA
     Dosage: 150 MG, BID
     Route: 048
     Dates: start: 20151116, end: 20151129
  16. RITUXIMAB. [Suspect]
     Active Substance: RITUXIMAB
     Dosage: 150 MG, BID
     Route: 048
     Dates: start: 20151130
  17. COTRIMOXAZOLE [Concomitant]
     Active Substance: SULFAMETHOXAZOLE\TRIMETHOPRIM
     Dosage: UNK
     Dates: start: 20160321
  18. E-RATIOPHARM [Concomitant]
     Dosage: UNK
  19. ALLOPURINOL. [Concomitant]
     Active Substance: ALLOPURINOL
     Dosage: UNK
  20. RITUXIMAB. [Suspect]
     Active Substance: RITUXIMAB
     Dosage: 150 MG, BID
     Route: 048
     Dates: start: 20151116, end: 20160321
  21. ALLOPURINOL-RATIOPHARM [Concomitant]
     Active Substance: ALLOPURINOL
     Dosage: UNK

REACTIONS (3)
  - Hepatitis A [Not Recovered/Not Resolved]
  - Alanine aminotransferase increased [Not Recovered/Not Resolved]
  - Pneumonia chlamydial [Fatal]

NARRATIVE: CASE EVENT DATE: 20160322
